FAERS Safety Report 25788165 (Version 2)
Quarter: 2025Q4

REPORT INFORMATION
  Report Type: Spontaneous
  Country: EU (occurrence: EU)
  Receive Date: 20250910
  Receipt Date: 20251003
  Transmission Date: 20260118
  Serious: Yes (Hospitalization, Other)
  Sender: SANOFI AVENTIS
  Company Number: EU-SA-2025SA268320

PATIENT
  Age: 49 Year
  Sex: Female

DRUGS (3)
  1. FABRAZYME [Suspect]
     Active Substance: AGALSIDASE BETA
     Indication: Fabry^s disease
     Dosage: QOW
     Route: 041
     Dates: start: 20131101, end: 201809
  2. FABRAZYME [Suspect]
     Active Substance: AGALSIDASE BETA
     Dosage: UNK, Q10D
     Dates: start: 201809, end: 20250808
  3. NITROGLYCERIN [Suspect]
     Active Substance: NITROGLYCERIN
     Indication: Coronary artery thrombosis
     Dosage: UNK
     Dates: start: 201708, end: 201712

REACTIONS (14)
  - Cerebrovascular accident [Unknown]
  - Syncope [Unknown]
  - Coronary artery thrombosis [Unknown]
  - Angina pectoris [Unknown]
  - Lipoedema [Unknown]
  - Nerve compression [Unknown]
  - Increased tendency to bruise [Unknown]
  - Blood cholesterol increased [Recovering/Resolving]
  - Lung disorder [Unknown]
  - Weight increased [Recovering/Resolving]
  - Headache [Unknown]
  - Hypotension [Unknown]
  - Fatigue [Unknown]
  - Off label use [Unknown]

NARRATIVE: CASE EVENT DATE: 20170801
